FAERS Safety Report 7733520-2 (Version None)
Quarter: 2011Q3

REPORT INFORMATION
  Report Type: 
  Country: None (occurrence: None)
  Receive Date: 20110907
  Receipt Date: 20110907
  Transmission Date: 20111222
  Serious: Yes (Other)
  Sender: FDA-Public Use
  Company Number: None

PATIENT
  Age: 36 Year
  Sex: Female
  Weight: 129.27 kg

DRUGS (1)
  1. CIPROFLOXACIN [Suspect]
     Indication: URINARY TRACT INFECTION
     Dosage: 250
     Route: 048
     Dates: start: 20110808, end: 20110815

REACTIONS (3)
  - SINUS TACHYCARDIA [None]
  - FEELING JITTERY [None]
  - ANXIETY [None]
